FAERS Safety Report 19293154 (Version 1)
Quarter: 2021Q2

REPORT INFORMATION
  Report Type: Spontaneous
  Country: PT (occurrence: PT)
  Receive Date: 20210524
  Receipt Date: 20210524
  Transmission Date: 20210717
  Serious: Yes (Other)
  Sender: FDA-Public Use
  Company Number: PT-PFIZER INC-2021535747

PATIENT
  Age: 67 Year
  Sex: Male

DRUGS (2)
  1. GLASDEGIB [Suspect]
     Active Substance: GLASDEGIB
     Indication: MYELODYSPLASTIC SYNDROME
     Dosage: 100 MG, CYCLIC (28 DAYS DAILY, 1 CYCLE)
     Route: 048
  2. CYTARABINE. [Suspect]
     Active Substance: CYTARABINE
     Indication: MYELODYSPLASTIC SYNDROME
     Dosage: 20 MG/M2, CYCLIC  (20 MG/M2/DAY; LOW?DOSE? 1 CYCLE) 10 DAYS PER CYCLE
     Route: 058

REACTIONS (1)
  - Febrile neutropenia [Unknown]
